FAERS Safety Report 9646520 (Version 2)
Quarter: 2013Q4

REPORT INFORMATION
  Report Type: Spontaneous
  Country: US (occurrence: US)
  Receive Date: 20131025
  Receipt Date: 20131224
  Transmission Date: 20140711
  Serious: Yes (Life-Threatening, Other)
  Sender: FDA-Public Use
  Company Number: US-SPECTRUM PHARMACEUTICALS, INC.-13-Z-US-00278

PATIENT
  Age: 60 Year
  Sex: Female
  Weight: 81.6 kg

DRUGS (1)
  1. ZEVALIN [Suspect]
     Indication: NODAL MARGINAL ZONE B-CELL LYMPHOMA
     Dosage: 32 MCI, SINGLE
     Route: 042
     Dates: start: 20130227, end: 20130227

REACTIONS (5)
  - Leukopenia [Recovered/Resolved]
  - Disease progression [Not Recovered/Not Resolved]
  - Pancytopenia [Recovered/Resolved]
  - Leukopenia [Not Recovered/Not Resolved]
  - Bone pain [Not Recovered/Not Resolved]
